FAERS Safety Report 8993563 (Version 4)
Quarter: 2013Q4

REPORT INFORMATION
  Report Type: Report from Study
  Country: US (occurrence: US)
  Receive Date: 20130102
  Receipt Date: 20131022
  Transmission Date: 20140711
  Serious: Yes (Hospitalization)
  Sender: FDA-Public Use
  Company Number: US-ACTELION-A-NJ2012-76918

PATIENT
  Age: 51 Year
  Sex: Female

DRUGS (4)
  1. TRACLEER [Suspect]
     Indication: PULMONARY ARTERIAL HYPERTENSION
     Dosage: 125 MG, BID
     Route: 048
  2. ADCIRCA [Concomitant]
  3. REVATIO [Concomitant]
  4. TYVASO [Concomitant]

REACTIONS (6)
  - Spinal operation [Unknown]
  - Spinal cord injury [Unknown]
  - Infection [Unknown]
  - Urinary tract infection [Unknown]
  - Fall [Unknown]
  - Painful respiration [Unknown]
